FAERS Safety Report 24140819 (Version 6)
Quarter: 2024Q4

REPORT INFORMATION
  Report Type: Report from Study
  Country: BE (occurrence: BE)
  Receive Date: 20240726
  Receipt Date: 20241231
  Transmission Date: 20250115
  Serious: Yes (Hospitalization, Other)
  Sender: EXELIXIS
  Company Number: BE-IPSEN Group, Research and Development-2024-02075

PATIENT

DRUGS (31)
  1. CABOZANTINIB [Suspect]
     Active Substance: CABOZANTINIB
     Indication: Renal cell carcinoma
     Dosage: 40 MG, QD
     Route: 065
     Dates: start: 20231009, end: 20240326
  2. CABOZANTINIB [Suspect]
     Active Substance: CABOZANTINIB
     Dosage: 40 MG, QD
     Route: 065
     Dates: start: 20240401, end: 20240812
  3. NIVOLUMAB [Concomitant]
     Active Substance: NIVOLUMAB
     Dosage: 240 MG
     Dates: start: 20231009
  4. NIVOLUMAB [Concomitant]
     Active Substance: NIVOLUMAB
     Dosage: 240 MG
     Dates: start: 20231023
  5. NIVOLUMAB [Concomitant]
     Active Substance: NIVOLUMAB
     Dosage: 240 MG
     Dates: start: 20231106
  6. NIVOLUMAB [Concomitant]
     Active Substance: NIVOLUMAB
     Dosage: 240 MG
     Dates: start: 20231120
  7. NIVOLUMAB [Concomitant]
     Active Substance: NIVOLUMAB
     Dosage: 240 MG
     Dates: start: 20231204
  8. NIVOLUMAB [Concomitant]
     Active Substance: NIVOLUMAB
     Dosage: 240 MG
     Dates: start: 20231218
  9. NIVOLUMAB [Concomitant]
     Active Substance: NIVOLUMAB
     Dosage: 240 MG
     Dates: start: 20240108
  10. NIVOLUMAB [Concomitant]
     Active Substance: NIVOLUMAB
     Dosage: 240 MG
     Dates: start: 20240122
  11. NIVOLUMAB [Concomitant]
     Active Substance: NIVOLUMAB
     Dosage: 240 MG
     Dates: start: 20240205
  12. NIVOLUMAB [Concomitant]
     Active Substance: NIVOLUMAB
     Dosage: 240 MG
     Dates: start: 20240219
  13. NIVOLUMAB [Concomitant]
     Active Substance: NIVOLUMAB
     Dosage: 240 MG
     Dates: start: 20240304
  14. NIVOLUMAB [Concomitant]
     Active Substance: NIVOLUMAB
     Dosage: 240 MG
     Dates: start: 20240318
  15. NIVOLUMAB [Concomitant]
     Active Substance: NIVOLUMAB
     Dosage: 240 MG
     Dates: start: 20240408
  16. NIVOLUMAB [Concomitant]
     Active Substance: NIVOLUMAB
     Dosage: 240 MG
     Dates: start: 20240422
  17. NIVOLUMAB [Concomitant]
     Active Substance: NIVOLUMAB
     Dosage: 240 MG
     Dates: start: 20240506
  18. NIVOLUMAB [Concomitant]
     Active Substance: NIVOLUMAB
     Dosage: 240 MG
     Dates: start: 20240521
  19. NIVOLUMAB [Concomitant]
     Active Substance: NIVOLUMAB
     Dosage: 240 MG
     Dates: start: 20240603
  20. NIVOLUMAB [Concomitant]
     Active Substance: NIVOLUMAB
     Dosage: 240 MG
     Dates: start: 20240617
  21. NIVOLUMAB [Concomitant]
     Active Substance: NIVOLUMAB
     Dosage: 240 MG
     Dates: start: 20240701
  22. NIVOLUMAB [Concomitant]
     Active Substance: NIVOLUMAB
     Dosage: 240 MG
     Dates: start: 20240715
  23. NIVOLUMAB [Concomitant]
     Active Substance: NIVOLUMAB
     Dosage: 240 MG
     Dates: start: 20240729
  24. NIVOLUMAB [Concomitant]
     Active Substance: NIVOLUMAB
     Dosage: 240 MG
     Dates: start: 20240812
  25. NIVOLUMAB [Concomitant]
     Active Substance: NIVOLUMAB
     Dosage: 240 MG
     Dates: start: 20240826
  26. NIVOLUMAB [Concomitant]
     Active Substance: NIVOLUMAB
     Dosage: 240 MG
     Dates: start: 20240909
  27. NIVOLUMAB [Concomitant]
     Active Substance: NIVOLUMAB
     Dosage: 240 MG
     Dates: start: 20240923
  28. NIVOLUMAB [Concomitant]
     Active Substance: NIVOLUMAB
     Dosage: 480 MG
     Dates: start: 20241007
  29. NIVOLUMAB [Concomitant]
     Active Substance: NIVOLUMAB
     Dosage: 480 MG
     Dates: start: 20241104
  30. ACETAMINOPHEN [Concomitant]
     Active Substance: ACETAMINOPHEN
     Indication: Transfusion reaction
     Dosage: 1 G, PRN
     Dates: start: 20231120, end: 20231123
  31. DIPROPHOS [Concomitant]
     Active Substance: BETAMETHASONE DIPROPIONATE\BETAMETHASONE SODIUM PHOSPHATE
     Indication: Carpal tunnel decompression
     Dosage: 4 OTHER MG/2ML, ONCE (INTRA-ARTICULAR  )
     Dates: start: 20240126, end: 20240126

REACTIONS (12)
  - Hepatotoxicity [Recovered/Resolved]
  - Appendicitis [Recovered/Resolved]
  - Myalgia [Not Recovered/Not Resolved]
  - Regurgitation [Not Recovered/Not Resolved]
  - Taste disorder [Not Recovered/Not Resolved]
  - Hypotension [Recovered/Resolved]
  - Blood lactate dehydrogenase increased [Recovered/Resolved]
  - Rash [Recovered/Resolved]
  - Dysphonia [Not Recovered/Not Resolved]
  - Mucosal inflammation [Not Recovered/Not Resolved]
  - Diarrhoea [Not Recovered/Not Resolved]
  - Lipase increased [Not Recovered/Not Resolved]

NARRATIVE: CASE EVENT DATE: 20231023
